FAERS Safety Report 10079694 (Version 1)
Quarter: 2014Q2

REPORT INFORMATION
  Report Type: Spontaneous
  Country: IT (occurrence: IT)
  Receive Date: 20140415
  Receipt Date: 20140415
  Transmission Date: 20141212
  Serious: Yes (Other)
  Sender: FDA-Public Use
  Company Number: IT-ABBVIE-14P-083-1226039-00

PATIENT
  Age: 57 Year
  Sex: 0

DRUGS (1)
  1. VALPROATE SODIUM/VALPROIC ACID [Suspect]
     Indication: DYSTHYMIC DISORDER
     Route: 048

REACTIONS (2)
  - Pleuropericarditis [Recovered/Resolved]
  - Pyrexia [Unknown]
